FAERS Safety Report 16474873 (Version 1)
Quarter: 2019Q3

REPORT INFORMATION
  Report Type: Spontaneous
  Country: US (occurrence: US)
  Receive Date: 20190624
  Receipt Date: 20190624
  Transmission Date: 20191004
  Serious: Yes (Other)
  Sender: FDA-Public Use
  Company Number: None

PATIENT
  Age: 63 Year
  Sex: Female
  Weight: 37.8 kg

DRUGS (5)
  1. VAGIFEM [Concomitant]
     Active Substance: ESTRADIOL
  2. PROLIA [Concomitant]
     Active Substance: DENOSUMAB
  3. VIT D [Concomitant]
     Active Substance: VITAMIN D NOS
  4. LEVETIRACETAM 500 MG TAB [Suspect]
     Active Substance: LEVETIRACETAM
     Indication: PARTIAL SEIZURES
     Dosage: ?          QUANTITY:2 CAPSULE(S);?
     Route: 048
     Dates: start: 20190619, end: 20190624
  5. CALCIUM [Concomitant]
     Active Substance: CALCIUM

REACTIONS (3)
  - Product substitution issue [None]
  - Seizure [None]
  - Therapeutic product effect incomplete [None]

NARRATIVE: CASE EVENT DATE: 20190622
